FAERS Safety Report 9065825 (Version 1)
Quarter: 2013Q1

REPORT INFORMATION
  Report Type: Report from Study
  Country: US (occurrence: US)
  Receive Date: 20130131
  Receipt Date: 20130131
  Transmission Date: 20140127
  Serious: No
  Sender: FDA-Public Use
  Company Number: US-ABBOTT-12P-163-1023096-00

PATIENT
  Age: 64 Year
  Sex: Female

DRUGS (4)
  1. HUMIRA [Suspect]
     Indication: PSORIATIC ARTHROPATHY
     Route: 058
     Dates: start: 201211
  2. SYNTHROID [Concomitant]
     Indication: HYPOTHYROIDISM
  3. VERAPAMIL [Concomitant]
     Indication: MIGRAINE
  4. MINOCYCLINE [Concomitant]
     Dosage: DAILY

REACTIONS (2)
  - Accidental exposure to product [Not Recovered/Not Resolved]
  - Injection site reaction [Not Recovered/Not Resolved]
